FAERS Safety Report 5196565-5 (Version None)
Quarter: 2006Q4

REPORT INFORMATION
  Report Type: 
  Country: None (occurrence: None)
  Receive Date: 20061222
  Receipt Date: 20061213
  Transmission Date: 20070319
  Serious: Yes (Death, Life-Threatening)
  Sender: FDA-Public Use
  Company Number: MC200600807

PATIENT
  Age: 53 Year
  Sex: Male
  Weight: 80 kg

DRUGS (2)
  1. ANGIOMAX [Suspect]
     Dosage: 60 MG BOLUS, IV BOLUS ; 140 MG HR INTRAVENOUS
     Route: 040
     Dates: start: 20061110, end: 20061110
  2. ANGIOMAX [Suspect]
     Dosage: 60 MG BOLUS, IV BOLUS ; 140 MG HR INTRAVENOUS
     Route: 040
     Dates: start: 20061110, end: 20061110

REACTIONS (15)
  - ATRIAL FLUTTER [None]
  - BUNDLE BRANCH BLOCK RIGHT [None]
  - CARDIAC ARREST [None]
  - CARDIOGENIC SHOCK [None]
  - CORONARY ARTERY OCCLUSION [None]
  - HYPOTENSION [None]
  - MYOCARDIAL RUPTURE [None]
  - PAIN [None]
  - PULMONARY OEDEMA [None]
  - STENT OCCLUSION [None]
  - SURGICAL PROCEDURE REPEATED [None]
  - TACHYCARDIA [None]
  - THROMBOSIS IN DEVICE [None]
  - UNDERDOSE [None]
  - VOMITING [None]
